FAERS Safety Report 15555031 (Version 2)
Quarter: 2018Q4

REPORT INFORMATION
  Report Type: Report from Study
  Country: DE (occurrence: DE)
  Receive Date: 20181026
  Receipt Date: 20181116
  Transmission Date: 20190205
  Serious: Yes (Hospitalization, Other)
  Sender: FDA-Public Use
  Company Number: PHHY2018DE065853

PATIENT
  Age: 62 Year
  Sex: Male
  Weight: 89 kg

DRUGS (26)
  1. SIROLIMUS. [Concomitant]
     Active Substance: SIROLIMUS
     Indication: GRAFT VERSUS HOST DISEASE
     Dosage: 1.5 OT, QD (1.5-0-0)
     Route: 065
     Dates: start: 201306
  2. PANTOZOL [Concomitant]
     Active Substance: PANTOPRAZOLE SODIUM
     Indication: PROPHYLAXIS
     Dosage: 40 MG, QD (0-0-1-0)
     Route: 065
     Dates: start: 201306
  3. VALACICLOVIR [Concomitant]
     Active Substance: VALACYCLOVIR HYDROCHLORIDE
     Indication: PROPHYLAXIS
     Dosage: 2 G, QID (2-0-2-0)
     Route: 065
     Dates: start: 201306
  4. TACROLIMUS. [Concomitant]
     Active Substance: TACROLIMUS
     Indication: GRAFT VERSUS HOST DISEASE IN SKIN
     Dosage: UNK (1-0-1-0)
     Route: 065
     Dates: start: 2015
  5. TURIXIN [Concomitant]
     Active Substance: MUPIROCIN CALCIUM
     Indication: GRAFT VERSUS HOST DISEASE IN SKIN
     Dosage: UNK, PRN (ON DEMAND)
     Route: 065
  6. BATRAFEN [Concomitant]
     Indication: GRAFT VERSUS HOST DISEASE IN SKIN
     Dosage: UNK (1-0-1-0)
     Route: 065
  7. PRIVIGEN [Concomitant]
     Active Substance: HUMAN IMMUNOGLOBULIN G
     Indication: IRON OVERLOAD
     Dosage: 10 G, QD (EVERY 2 WEEKS)
     Route: 065
     Dates: start: 20171213
  8. EXJADE [Suspect]
     Active Substance: DEFERASIROX
     Indication: IRON OVERLOAD
     Dosage: 12.4 MG/KG BODY WEIGHT/DAY (3 TABLETS OF 360 MG), UNK
     Route: 065
     Dates: start: 20180516, end: 20180601
  9. KALINOR RETARD P [Concomitant]
     Active Substance: POTASSIUM CHLORIDE
     Indication: PROPHYLAXIS
     Dosage: 2.4 G, QID (1-1-1-1)
     Route: 065
     Dates: start: 201306
  10. CORNEREGEL [Concomitant]
     Active Substance: DEXPANTHENOL
     Indication: GRAFT VERSUS HOST DISEASE IN SKIN
     Dosage: UNK (ON DEMAND) (SINGLE DOSES)
     Route: 065
  11. EXJADE [Suspect]
     Active Substance: DEFERASIROX
     Dosage: 12.4 MG/KG BODY WEIGHT/DAY (3 TABLETS OF 360 MG), UNK
     Route: 065
     Dates: start: 20180615, end: 20180830
  12. COTRIM FORTE [Concomitant]
     Active Substance: SULFAMETHOXAZOLE\TRIMETHOPRIM
     Indication: PROPHYLAXIS
     Dosage: 960 G, UNK (AS REPORTED MONDAY, WEDNESDAY, FRIDAY)
     Route: 065
     Dates: start: 201306
  13. MAGNETRANS FORTE [Concomitant]
     Active Substance: MAGNESIUM OXIDE
     Indication: PROPHYLAXIS
     Dosage: 600 MG, QID (1-1-1-1)
     Route: 065
     Dates: start: 201306
  14. DEKRISTOL [Concomitant]
     Active Substance: CHOLECALCIFEROL
     Indication: PROPHYLAXIS
     Dosage: 20000 IU, QW
     Route: 065
     Dates: start: 2013
  15. BELOC-ZOC MITE [Concomitant]
     Active Substance: METOPROLOL SUCCINATE
     Indication: HYPERTENSION
     Dosage: 95 MG, BID (1-0-1-0)
     Route: 065
  16. TORASEMIDE [Concomitant]
     Active Substance: TORSEMIDE
     Indication: HYPERTENSION
     Dosage: 5 MG, QD (ON DEMAND/ AS NEEDED)
     Route: 065
  17. IKERVIS [Concomitant]
     Active Substance: CYCLOSPORINE
     Indication: GRAFT VERSUS HOST DISEASE IN SKIN
     Dosage: 1 MG, TID (1-0-1-1)
     Route: 065
  18. CLEXANE [Concomitant]
     Active Substance: ENOXAPARIN SODIUM
     Indication: PROPHYLAXIS
     Dosage: 4000 IU, QD (0-0-1-0)
     Route: 065
  19. AMPHO-MORONAL [Concomitant]
     Active Substance: AMPHOTERICIN B
     Indication: PROPHYLAXIS
     Dosage: 20 ML, QID
     Route: 065
     Dates: start: 20180628, end: 20180725
  20. RITUXIMAB. [Concomitant]
     Active Substance: RITUXIMAB
     Indication: IRON OVERLOAD
     Dosage: QID
     Route: 065
     Dates: start: 20181017
  21. DECORTIN [Concomitant]
     Active Substance: PREDNISONE
     Indication: PROPHYLAXIS
     Dosage: 25 MG, QD (25-0-0)
     Route: 065
     Dates: start: 201306
  22. DELIX (RAMIPRIL) [Concomitant]
     Active Substance: RAMIPRIL
     Indication: HYPERTENSION
     Dosage: 5 MG, QD (1-0-0-0)
     Route: 065
  23. SOOLANTRA [Concomitant]
     Active Substance: IVERMECTIN
     Indication: GRAFT VERSUS HOST DISEASE IN SKIN
     Dosage: QD
     Route: 065
     Dates: start: 20180725
  24. METHYLPREDNISOLONE. [Concomitant]
     Active Substance: METHYLPREDNISOLONE
     Indication: GRAFT VERSUS HOST DISEASE IN GASTROINTESTINAL TRACT
     Dosage: 320 MG, QD (8-0-0-0)
     Route: 065
     Dates: start: 20180725
  25. ACETAMINOPHEN. [Concomitant]
     Active Substance: ACETAMINOPHEN
     Indication: PRODUCT USED FOR UNKNOWN INDICATION
     Route: 065
  26. SYMBICORT [Concomitant]
     Active Substance: BUDESONIDE\FORMOTEROL FUMARATE DIHYDRATE
     Indication: PROPHYLAXIS
     Dosage: 1 DF, PRN
     Route: 065

REACTIONS (6)
  - Epigastric discomfort [Unknown]
  - Lumbar vertebral fracture [Not Recovered/Not Resolved]
  - Diarrhoea [Recovered/Resolved]
  - Pneumatosis intestinalis [Not Recovered/Not Resolved]
  - Abdominal pain [Not Recovered/Not Resolved]
  - Alanine aminotransferase increased [Recovering/Resolving]

NARRATIVE: CASE EVENT DATE: 20180526
